FAERS Safety Report 7273400-2 (Version None)
Quarter: 2011Q1

REPORT INFORMATION
  Report Type: 
  Country: None (occurrence: None)
  Receive Date: 20110203
  Receipt Date: 20100904
  Transmission Date: 20110831
  Serious: No
  Sender: FDA-Public Use
  Company Number: US-ABBOTT-10P-163-0669949-00

PATIENT
  Sex: Female

DRUGS (1)
  1. SYNTHROID [Suspect]
     Indication: PRODUCT USED FOR UNKNOWN INDICATION
     Dates: start: 20100801

REACTIONS (9)
  - NAUSEA [None]
  - MYALGIA [None]
  - PYREXIA [None]
  - HYPERHIDROSIS [None]
  - MUSCLE SPASMS [None]
  - FEELING HOT [None]
  - CHEST DISCOMFORT [None]
  - INSOMNIA [None]
  - NASOPHARYNGITIS [None]
